FAERS Safety Report 5444057-8 (Version None)
Quarter: 2007Q3

REPORT INFORMATION
  Report Type: 
  Country: None (occurrence: None)
  Receive Date: 20070831
  Receipt Date: 20070823
  Transmission Date: 20080115
  Serious: Yes (Other)
  Sender: FDA-Public Use
  Company Number: 2007SP017131

PATIENT
  Age: 54 Year
  Sex: Female

DRUGS (2)
  1. PEG-INTRON [Suspect]
     Indication: HEPATITIS C
     Dates: start: 20070409
  2. REBETOL [Suspect]
     Indication: HEPATITIS C
     Dosage: PO
     Route: 048
     Dates: start: 20070409

REACTIONS (15)
  - ABASIA [None]
  - ARTHRALGIA [None]
  - ASTHENIA [None]
  - BACK PAIN [None]
  - BONE PAIN [None]
  - CELLULITIS [None]
  - LYMPHADENOPATHY [None]
  - MUSCLE DISORDER [None]
  - OEDEMA PERIPHERAL [None]
  - PYREXIA [None]
  - RED BLOOD CELL COUNT DECREASED [None]
  - SECRETION DISCHARGE [None]
  - THROMBOSIS [None]
  - VOMITING [None]
  - WHITE BLOOD CELL COUNT DECREASED [None]
